FAERS Safety Report 6266844-9 (Version None)
Quarter: 2009Q3

REPORT INFORMATION
  Report Type: 
  Country: None (occurrence: None)
  Receive Date: 20090710
  Receipt Date: 20090710
  Transmission Date: 20100115
  Serious: Yes (Other)
  Sender: FDA-Public Use
  Company Number: None

PATIENT
  Age: 41 Year
  Sex: Female
  Weight: 68.9467 kg

DRUGS (2)
  1. HYDROCODONE BITARTRATE + ACETAMINOPHEN [Suspect]
     Indication: KNEE OPERATION
     Dates: start: 20090518, end: 20090525
  2. OXYCODONE HCL AND ACETAMINOPHEN [Suspect]
     Indication: KNEE OPERATION
     Dates: start: 20090526, end: 20090527

REACTIONS (1)
  - SKIN LESION [None]
